FAERS Safety Report 4373327-X (Version None)
Quarter: 2004Q2

REPORT INFORMATION
  Report Type: 
  Country: None (occurrence: None)
  Receive Date: 20040603
  Receipt Date: 20040520
  Transmission Date: 20050107
  Serious: Yes (Other)
  Sender: FDA-Public Use
  Company Number: K200400782

PATIENT
  Age: 22 Year
  Sex: Female
  Weight: 54.4 kg

DRUGS (6)
  1. SEPTRA [Suspect]
     Indication: URINARY TRACT INFECTION
     Dosage: 1 TAB, BID, ORAL
     Route: 048
     Dates: start: 20040127, end: 20040101
  2. KEPPRA [Suspect]
     Indication: CONVULSION
     Dosage: SEE IMAGE
     Route: 048
     Dates: start: 20020301
  3. ABILIFY [Concomitant]
  4. DIAZEPAM [Concomitant]
  5. AMANTADINE HCL [Concomitant]
  6. SPIRONOLACTONE [Concomitant]

REACTIONS (2)
  - DRUG INTERACTION [None]
  - GRAND MAL CONVULSION [None]
